FAERS Safety Report 5670846-0 (Version None)
Quarter: 2008Q1

REPORT INFORMATION
  Report Type: 
  Country: None (occurrence: None)
  Receive Date: 20080313
  Receipt Date: 20080229
  Transmission Date: 20080703
  Serious: Yes (Hospitalization)
  Sender: FDA-Public Use
  Company Number: GXKR2008US02304

PATIENT
  Age: 20 Year
  Sex: Female

DRUGS (10)
  1. METHADONE HCL [Suspect]
     Indication: BACK PAIN
     Dosage: TAPERED DOSE; TAPERED 10-20% PER DAY, OVER
  2. OXYCODONE HYDROCHLORIDE [Suspect]
     Indication: PAIN
  3. ACETAMINOPHEN [Concomitant]
  4. METHYLPREDNISOLONE [Concomitant]
  5. MESALAMINE [Concomitant]
  6. DULOXETINE (DULOXETINE) [Concomitant]
  7. CLONIDINE [Concomitant]
  8. CYCLOBENZAPRINE [Concomitant]
  9. LORAZEPAM [Concomitant]
  10. NARCCOTICS [Concomitant]

REACTIONS (10)
  - ABDOMINAL DISTENSION [None]
  - ABDOMINAL PAIN LOWER [None]
  - CONSTIPATION [None]
  - DRUG ABUSE [None]
  - INTESTINAL FUNCTIONAL DISORDER [None]
  - IRON DEFICIENCY ANAEMIA [None]
  - NAUSEA [None]
  - TREATMENT NONCOMPLIANCE [None]
  - VOMITING [None]
  - WEIGHT DECREASED [None]
